FAERS Safety Report 7412767-9 (Version None)
Quarter: 2011Q2

REPORT INFORMATION
  Report Type: 
  Country: None (occurrence: None)
  Receive Date: 20110413
  Receipt Date: 20110407
  Transmission Date: 20111010
  Serious: Yes (Other)
  Sender: FDA-Public Use
  Company Number: A0921827A

PATIENT
  Sex: Female

DRUGS (1)
  1. ADVAIR HFA [Suspect]
     Indication: CHRONIC OBSTRUCTIVE PULMONARY DISEASE
     Dosage: 1PUFF TWICE PER DAY
     Route: 055
     Dates: start: 20080101

REACTIONS (5)
  - ORAL FUNGAL INFECTION [None]
  - TONGUE ERUPTION [None]
  - TONGUE DISCOLOURATION [None]
  - NEOPLASM MALIGNANT [None]
  - TONGUE DISORDER [None]
